FAERS Safety Report 5972937-3 (Version None)
Quarter: 2008Q4

REPORT INFORMATION
  Report Type: 
  Country: None (occurrence: None)
  Receive Date: 20081201
  Receipt Date: 20081120
  Transmission Date: 20090506
  Serious: Yes (Other)
  Sender: FDA-Public Use
  Company Number: PHHY2008IT29327

PATIENT
  Sex: Male

DRUGS (1)
  1. DESFERAL [Suspect]
     Indication: THALASSAEMIA

REACTIONS (7)
  - ASTHENIA [None]
  - DRUG INTOLERANCE [None]
  - EOSINOPHILIC PNEUMONIA [None]
  - FATIGUE [None]
  - INTERSTITIAL LUNG DISEASE [None]
  - RESPIRATORY DISORDER [None]
  - TRANSAMINASES INCREASED [None]
